FAERS Safety Report 10158517 (Version 1)
Quarter: 2014Q2

REPORT INFORMATION
  Report Type: Spontaneous
  Country: CA (occurrence: CA)
  Receive Date: 20140507
  Receipt Date: 20140507
  Transmission Date: 20141212
  Serious: Yes (Life-Threatening, Hospitalization, Disabling)
  Sender: FDA-Public Use
  Company Number: PHHY2014CA055055

PATIENT
  Age: 39 Year
  Sex: Female
  Weight: 55.33 kg

DRUGS (2)
  1. CARBAMAZEPINE SANDOZ [Suspect]
     Dosage: 600 MG, QD
  2. ALESSE [Interacting]
     Dosage: 20 MG, QD

REACTIONS (3)
  - Abortion induced [Unknown]
  - Unwanted pregnancy [Unknown]
  - Drug interaction [Unknown]
